FAERS Safety Report 8171871-0 (Version None)
Quarter: 2012Q1

REPORT INFORMATION
  Report Type: 
  Country: None (occurrence: None)
  Receive Date: 20120228
  Receipt Date: 20120222
  Transmission Date: 20120608
  Serious: No
  Sender: FDA-Public Use
  Company Number: US-B.I. PHARMACEUTICALS,INC./RIDGEFIELD-2011-BP-18243BP

PATIENT
  Sex: Female
  Weight: 90.72 kg

DRUGS (44)
  1. ALBUTEROL INHALER [Concomitant]
     Route: 055
     Dates: start: 20110505
  2. BENADRYL [Concomitant]
  3. GABAPENTIN [Concomitant]
     Dosage: 600 MG
     Dates: start: 20110203
  4. CEFTIN [Concomitant]
  5. METOPROLOL [Concomitant]
     Indication: BLOOD PRESSURE
     Dosage: 50 MG
     Route: 048
     Dates: start: 20110203
  6. LOVAZA [Concomitant]
     Dosage: 4 G
     Route: 048
     Dates: start: 20110630
  7. ATROVENT [Concomitant]
     Indication: BRONCHITIS
     Dosage: 17 MCG
     Route: 055
     Dates: start: 20101101
  8. STOOL SOFTENER [Concomitant]
  9. FLOVENT [Concomitant]
     Indication: BRONCHITIS
     Route: 055
     Dates: start: 20110630
  10. SOVAGA [Concomitant]
     Dosage: 1 G
  11. SENNA [Concomitant]
  12. POTASSIUM CHLORIDE [Concomitant]
     Indication: MINERAL SUPPLEMENTATION
     Dosage: 99 MG
     Route: 048
  13. FLEXAMIN [Concomitant]
     Dosage: 60 MG
  14. HYPER-SOL [Concomitant]
  15. ASPIRIN [Concomitant]
     Indication: PAIN
     Dosage: 325 MG
     Route: 048
     Dates: start: 20110203
  16. PRAVACHOL [Concomitant]
     Indication: BLOOD CHOLESTEROL
     Dosage: 20 MG
     Route: 048
     Dates: start: 20110203
  17. OMEPRAZOLE [Concomitant]
     Indication: GASTROOESOPHAGEAL REFLUX DISEASE
     Dosage: 40 MG
     Route: 048
     Dates: start: 20110203
  18. LOVAZA [Concomitant]
     Dosage: 2 MG
     Route: 048
  19. ASCORBIC ACID [Concomitant]
     Indication: VITAMIN SUPPLEMENTATION
     Dosage: 1000 MG
     Route: 048
     Dates: start: 20100624
  20. CETIRIZINE [Concomitant]
  21. NASONEX [Concomitant]
  22. IRON [Concomitant]
     Dosage: 1300 MG
  23. ACTOS [Concomitant]
     Dosage: 30 MG
  24. ALLEGRA [Concomitant]
     Dosage: 180 MG
  25. GLUCOPHAGE [Concomitant]
     Indication: TYPE 2 DIABETES MELLITUS
     Dosage: 2000 MG
     Route: 048
     Dates: start: 20100311
  26. FLUTICASONE PROPIONATE [Concomitant]
     Indication: BRONCHITIS
     Route: 055
     Dates: start: 20101101
  27. MIRALAX [Concomitant]
  28. TRILIPIX [Concomitant]
     Dosage: 135 MG
     Route: 048
     Dates: start: 20110203
  29. MULTI-VITAMIN [Concomitant]
     Indication: VITAMIN SUPPLEMENTATION
     Route: 048
  30. VITAMIN D [Concomitant]
     Indication: VITAMIN SUPPLEMENTATION
     Dosage: 2000 MG
     Route: 048
  31. CEFUROXIME [Concomitant]
  32. VENTOLIN [Concomitant]
     Dates: start: 20110203
  33. IBUPROFEN [Concomitant]
  34. METFORMIN HCL [Concomitant]
  35. HYPER-SOL [Concomitant]
     Route: 055
     Dates: start: 20110526
  36. TRADJENTA [Suspect]
     Indication: TYPE 2 DIABETES MELLITUS
     Dosage: 5 MG
     Route: 048
     Dates: end: 20110714
  37. SYNTHROID [Concomitant]
     Indication: SUPPLEMENTATION THERAPY
     Dosage: 112 MCG
     Route: 048
     Dates: start: 20110203
  38. ALBUTEROL INHALER [Concomitant]
     Indication: BRONCHITIS
     Route: 055
     Dates: start: 20101101
  39. FLOVENT [Concomitant]
     Route: 055
     Dates: start: 20110526
  40. ATROVENT [Concomitant]
     Dosage: 17 MCG
     Route: 055
     Dates: start: 20110526
  41. MAGNESIUM [Concomitant]
     Indication: MINERAL SUPPLEMENTATION
     Dosage: 250 MG
     Route: 048
  42. ATARAX [Concomitant]
  43. CALCIUM+D [Concomitant]
     Route: 048
     Dates: start: 20100624
  44. CEFTIN [Concomitant]
     Route: 055
     Dates: start: 20110526

REACTIONS (5)
  - SKIN EXFOLIATION [None]
  - RASH GENERALISED [None]
  - RASH PRURITIC [None]
  - BLISTER [None]
  - ECZEMA [None]
